FAERS Safety Report 24182812 (Version 1)
Quarter: 2024Q3

REPORT INFORMATION
  Report Type: Report from Study
  Country: CA (occurrence: CA)
  Receive Date: 20240807
  Receipt Date: 20240807
  Transmission Date: 20241017
  Serious: Yes (Other)
  Sender: JOHNSON AND JOHNSON
  Company Number: CA-JNJFOC-20231009782

PATIENT
  Sex: Male
  Weight: 90 kg

DRUGS (1)
  1. REMICADE [Suspect]
     Active Substance: INFLIXIMAB
     Indication: Crohn^s disease
     Dosage: UNIT DOSE: 5 MG/KG; VIAL ROUNDED UP TO COMPLETE VIAL 500 MG
     Route: 041

REACTIONS (3)
  - Tuberculosis [Unknown]
  - Fistula [Recovering/Resolving]
  - Off label use [Unknown]
